FAERS Safety Report 16306930 (Version 4)
Quarter: 2019Q3

REPORT INFORMATION
  Report Type: Spontaneous
  Country: US (occurrence: US)
  Receive Date: 20190513
  Receipt Date: 20190715
  Transmission Date: 20191004
  Serious: Yes (Death, Hospitalization)
  Sender: FDA-Public Use
  Company Number: US-ACTELION-A-NJ2019-189802

PATIENT
  Age: 73 Year
  Sex: Male
  Weight: 134.69 kg

DRUGS (6)
  1. WARFARIN [Concomitant]
     Active Substance: WARFARIN
  2. OPSUMIT [Suspect]
     Active Substance: MACITENTAN
     Dosage: UNK
     Route: 048
     Dates: end: 201906
  3. OPSUMIT [Suspect]
     Active Substance: MACITENTAN
     Indication: PULMONARY ARTERIAL HYPERTENSION
     Dosage: 10 MG, QD
     Route: 048
     Dates: start: 201904, end: 20190422
  4. ADEMPAS [Concomitant]
     Active Substance: RIOCIGUAT
     Dosage: UNK
     Dates: end: 201906
  5. DILTIAZEM. [Concomitant]
     Active Substance: DILTIAZEM
  6. UPTRAVI [Suspect]
     Active Substance: SELEXIPAG
     Indication: PULMONARY ARTERIAL HYPERTENSION
     Dosage: 600 MCG, BID
     Route: 048
     Dates: end: 201906

REACTIONS (8)
  - Swelling [Unknown]
  - Decreased appetite [Unknown]
  - Oedema [Recovering/Resolving]
  - Fluid overload [Unknown]
  - Joint swelling [Unknown]
  - Death [Fatal]
  - Dyspnoea [Unknown]
  - Hypoxia [Unknown]

NARRATIVE: CASE EVENT DATE: 201904
